FAERS Safety Report 11529438 (Version 2)
Quarter: 2015Q4

REPORT INFORMATION
  Report Type: Spontaneous
  Country: JP (occurrence: JP)
  Receive Date: 20150921
  Receipt Date: 20151005
  Transmission Date: 20160304
  Serious: Yes (Death)
  Sender: FDA-Public Use
  Company Number: JP-SA-2015SA143126

PATIENT
  Age: 30 Year
  Sex: Female
  Weight: 57.5 kg

DRUGS (6)
  1. DIAZEPAM. [Interacting]
     Active Substance: DIAZEPAM
     Indication: PANIC DISORDER
     Route: 048
  2. NORDAZEPAM [Interacting]
     Active Substance: NORDAZEPAM
     Indication: PANIC DISORDER
     Route: 048
  3. TEMAZEPAM. [Interacting]
     Active Substance: TEMAZEPAM
     Indication: PANIC DISORDER
     Route: 048
  4. PAROXETINE HYDROCHLORIDE. [Interacting]
     Active Substance: PAROXETINE HYDROCHLORIDE
     Indication: PANIC DISORDER
     Route: 048
  5. DIPHENHYDRAMINE. [Suspect]
     Active Substance: DIPHENHYDRAMINE
     Indication: PANIC DISORDER
     Route: 048
  6. PHENOBARBITAL. [Interacting]
     Active Substance: PHENOBARBITAL
     Indication: PANIC DISORDER
     Route: 048

REACTIONS (2)
  - Toxicity to various agents [Fatal]
  - Drug interaction [Fatal]
